FAERS Safety Report 8429178-X (Version None)
Quarter: 2012Q2

REPORT INFORMATION
  Report Type: 
  Country: None (occurrence: None)
  Receive Date: 20120612
  Receipt Date: 20120607
  Transmission Date: 20120825
  Serious: Yes (Hospitalization, Other)
  Sender: FDA-Public Use
  Company Number: FR-PFIZER INC-2012081132

PATIENT
  Age: 52 Year
  Sex: Female

DRUGS (8)
  1. IRBESARTAN AND HYDROCHLOROTHIAZIDE [Concomitant]
     Dosage: 300 MG/12.5 MG
     Route: 048
  2. TRAMADOL [Concomitant]
     Dosage: UNK
     Route: 048
  3. METHOTREXATE [Suspect]
     Dosage: 8 MG, WEEKLY
     Route: 048
     Dates: start: 20110101, end: 20120101
  4. TAMOXIFEN [Concomitant]
     Dosage: 20 MG, 1X/DAY
     Route: 048
  5. METHOTREXATE [Suspect]
     Dosage: UNK
     Dates: start: 20080101, end: 20110101
  6. DOMPERIDONE [Concomitant]
     Dosage: UNK
     Route: 048
  7. FOLIC ACID [Concomitant]
     Dosage: UNK
     Route: 048
  8. PREDNISONE TAB [Concomitant]
     Dosage: 20 MG, 1X/DAY

REACTIONS (4)
  - CARDIAC MURMUR [None]
  - HAEMOLYTIC ANAEMIA [None]
  - NORMOCHROMIC NORMOCYTIC ANAEMIA [None]
  - BREAST CANCER FEMALE [None]
